FAERS Safety Report 12527660 (Version 2)
Quarter: 2016Q3

REPORT INFORMATION
  Report Type: Spontaneous
  Country: JP (occurrence: JP)
  Receive Date: 20160705
  Receipt Date: 20160726
  Transmission Date: 20161109
  Serious: Yes (Death, Hospitalization)
  Sender: FDA-Public Use
  Company Number: JP-PFIZER INC-2016318997

PATIENT
  Age: 68 Year
  Sex: Male
  Weight: 46.5 kg

DRUGS (1)
  1. ZYVOX [Suspect]
     Active Substance: LINEZOLID
     Indication: STAPHYLOCOCCAL INFECTION
     Dosage: 600 MG, 2X/DAY
     Route: 041
     Dates: start: 20160330, end: 20160618

REACTIONS (2)
  - Lactic acidosis [Fatal]
  - Overdose [Unknown]

NARRATIVE: CASE EVENT DATE: 20160330
